FAERS Safety Report 6848802-6 (Version None)
Quarter: 2010Q3

REPORT INFORMATION
  Report Type: 
  Country: None (occurrence: None)
  Receive Date: 20100716
  Receipt Date: 20070910
  Transmission Date: 20110219
  Serious: No
  Sender: FDA-Public Use
  Company Number: US-PFIZER INC-2007075752

PATIENT
  Sex: Female
  Weight: 62.1 kg

DRUGS (5)
  1. CHANTIX [Suspect]
     Indication: SMOKING CESSATION THERAPY
     Dates: start: 20070825, end: 20070906
  2. THYROID TAB [Concomitant]
  3. ESTRADERM [Concomitant]
  4. CELEBREX [Concomitant]
  5. DETROL [Concomitant]

REACTIONS (2)
  - DYSPEPSIA [None]
  - NAUSEA [None]
